FAERS Safety Report 4303217-X (Version None)
Quarter: 2004Q1

REPORT INFORMATION
  Report Type: 
  Country: None (occurrence: None)
  Receive Date: 20040224
  Receipt Date: 20040202
  Transmission Date: 20041129
  Serious: Yes (Life-Threatening)
  Sender: FDA-Public Use
  Company Number: JP-BRISTOL-MYERS SQUIBB COMPANY-12493516

PATIENT
  Age: 56 Year
  Sex: Female

DRUGS (2)
  1. TAXOL [Suspect]
     Indication: BREAST CANCER RECURRENT
     Route: 042
     Dates: start: 20040121, end: 20040121
  2. UFT [Concomitant]
     Dates: start: 19971125, end: 20030818

REACTIONS (1)
  - DISSEMINATED INTRAVASCULAR COAGULATION [None]
